FAERS Safety Report 23076955 (Version 2)
Quarter: 2024Q2

REPORT INFORMATION
  Report Type: Spontaneous
  Country: FR (occurrence: FR)
  Receive Date: 20231018
  Receipt Date: 20240507
  Transmission Date: 20240716
  Serious: Yes (Death)
  Sender: FDA-Public Use
  Company Number: None

PATIENT
  Age: 83 Year
  Sex: Male
  Weight: 57.299 kg

DRUGS (15)
  1. HYDROXYUREA [Suspect]
     Active Substance: HYDROXYUREA
     Indication: Thrombocytosis
     Dosage: UNTIL JULY, THEN INCREASED DOSAGE IN AUGUST,INCREASED FROM 12 CAPSULES/WEEK TO ALTERNATING BETWEE...
     Route: 048
     Dates: start: 2021
  2. HYDROXYUREA [Suspect]
     Active Substance: HYDROXYUREA
     Indication: Thrombocytosis
     Dosage: HYDROXYCARBAMIDE WAS INCREASED TO 3 CAPSULES PER DAY
  3. REBLOZYL [Suspect]
     Active Substance: LUSPATERCEPT-AAMT
     Indication: Anaemia
     Route: 042
     Dates: start: 20220920, end: 20231105
  4. REBLOZYL [Suspect]
     Active Substance: LUSPATERCEPT-AAMT
     Indication: Anaemia
     Dosage: INCREASED FROM 1MG/KG/3 WEEKS TO 1.33MG/KG/3 WEEKS
     Dates: start: 20230710
  5. REBLOZYL [Suspect]
     Active Substance: LUSPATERCEPT-AAMT
     Indication: Anaemia
     Dates: start: 2024
  6. REBLOZYL [Suspect]
     Active Substance: LUSPATERCEPT-AAMT
     Indication: Anaemia
     Dosage: INCREASED FROM 1MG/KG/3 WEEKS TO 1.33MG/KG/3 WEEKS
  7. RUXOLITINIB [Concomitant]
     Active Substance: RUXOLITINIB
  8. TRAMADOL [Concomitant]
     Active Substance: TRAMADOL\TRAMADOL HYDROCHLORIDE
  9. ESOMEPRAZOLE [Concomitant]
     Active Substance: ESOMEPRAZOLE
  10. ALLOPURINOL [Concomitant]
     Active Substance: ALLOPURINOL
  11. FINASTERIDE [Concomitant]
     Active Substance: FINASTERIDE
  12. ASPIRIN [Concomitant]
     Active Substance: ASPIRIN
  13. ATORVASTATIN [Concomitant]
     Active Substance: ATORVASTATIN
  14. FLUCONAZOLE [Concomitant]
     Active Substance: FLUCONAZOLE
  15. CHOLECALCIFEROL [Concomitant]
     Active Substance: CHOLECALCIFEROL

REACTIONS (2)
  - Osteonecrosis [Fatal]
  - Hyperleukocytosis [Fatal]

NARRATIVE: CASE EVENT DATE: 20230601
